FAERS Safety Report 8820805 (Version 1)
Quarter: 2012Q4

REPORT INFORMATION
  Report Type: 
  Country: US (occurrence: US)
  Receive Date: 20121002
  Receipt Date: 20121002
  Transmission Date: 20130627
  Serious: No
  Sender: FDA-Public Use
  Company Number: US-B.I. PHARMACEUTICALS,INC./RIDGEFIELD-2012-BP-23852BP

PATIENT
  Age: 41 Year
  Sex: Female
  Weight: 136 kg

DRUGS (3)
  1. COMBIVENT [Suspect]
     Indication: ASTHMA
     Route: 055
     Dates: start: 20120926
  2. LORATADINE [Concomitant]
     Indication: URTICARIA
     Dates: start: 2010
  3. VENTOLIN [Concomitant]
     Indication: ASTHMA

REACTIONS (1)
  - Drug ineffective for unapproved indication [Recovered/Resolved]
